FAERS Safety Report 8798544 (Version 6)
Quarter: 2014Q1

REPORT INFORMATION
  Report Type: Report from Study
  Country: JP (occurrence: JP)
  Receive Date: 20120920
  Receipt Date: 20140318
  Transmission Date: 20141002
  Serious: Yes (Hospitalization, Other)
  Sender: FDA-Public Use
  Company Number: JP-VERTEX PHARMACEUTICAL INC.-2012-021502

PATIENT
  Age: 70 Year
  Sex: Female

DRUGS (21)
  1. VX-950 (TELAPREVIR) [Suspect]
     Indication: CHRONIC HEPATITIS C
     Dosage: 1500 MG, QD
     Route: 048
     Dates: start: 20120706, end: 20120914
  2. REBETOL [Suspect]
     Indication: CHRONIC HEPATITIS C
     Dosage: 200 MG, QD
     Route: 048
     Dates: start: 20120705, end: 20121005
  3. PEGINTRON [Suspect]
     Indication: CHRONIC HEPATITIS C
     Dosage: 1.5 ?G/KG, QW
     Route: 058
     Dates: start: 20120705, end: 20120817
  4. PEGINTRON [Suspect]
     Dosage: 0.8 ?G/KG, QW
     Route: 058
     Dates: start: 20120824
  5. GLIMICRON [Concomitant]
     Dosage: 20 MG, QD
     Route: 048
     Dates: start: 20120713
  6. JANUVIA [Concomitant]
     Dosage: 50 MG, QD
     Route: 048
     Dates: start: 20120713
  7. FERROMIA [Concomitant]
     Dosage: 100 MG, QD
     Route: 048
     Dates: start: 20120713
  8. URSO [Concomitant]
     Dosage: 600 MG, QD
     Route: 048
     Dates: start: 20120713
  9. MUCOSTA [Concomitant]
     Dosage: 300 MG, QD
     Route: 048
     Dates: start: 20120713
  10. DIOVAN [Concomitant]
     Dosage: 80 MG, QD
     Route: 048
     Dates: start: 20120713
  11. CELLCEPT [Concomitant]
     Dosage: 500 MG, QD
     Route: 048
     Dates: start: 20120713
  12. NORVASC OD [Concomitant]
     Dosage: 5 MG, QD
     Route: 048
     Dates: start: 20120713
  13. PARIET [Concomitant]
     Dosage: 10 MG, QD
     Route: 048
     Dates: start: 20120713
  14. BAYASPIRIN [Concomitant]
     Dosage: 100 MG, QD
     Route: 048
     Dates: start: 20120713
  15. PURSENNID [Concomitant]
     Dosage: 24 MG, QD
     Route: 048
     Dates: start: 20120713
  16. GLYCYRON [Concomitant]
     Dosage: 3 DF, QD
     Route: 048
     Dates: start: 20120713
  17. GLYCYRON [Concomitant]
     Dosage: 9 DF, QD
     Route: 048
     Dates: start: 20120720
  18. ZYLORIC [Concomitant]
     Dosage: 100 MG, QD
     Route: 048
     Dates: start: 20120713, end: 20120716
  19. NEORAL [Concomitant]
     Dosage: 10 MG, QD
     Route: 048
     Dates: start: 20120720, end: 20120913
  20. NESINA [Concomitant]
     Dosage: 25 MG, QD
     Route: 048
     Dates: start: 20120803, end: 20120816
  21. FEBURIC [Concomitant]
     Dosage: 20 MG, QD
     Route: 048
     Dates: start: 20120815, end: 20121014

REACTIONS (4)
  - Decreased appetite [Recovering/Resolving]
  - Renal failure acute [Recovered/Resolved]
  - Anaemia [Recovering/Resolving]
  - Off label use [Unknown]
